FAERS Safety Report 4371766-4 (Version None)
Quarter: 2004Q2

REPORT INFORMATION
  Report Type: 
  Country: None (occurrence: None)
  Receive Date: 20040601
  Receipt Date: 20040517
  Transmission Date: 20050107
  Serious: Yes (Other)
  Sender: FDA-Public Use
  Company Number: S03-USA-03330-01

PATIENT
  Age: 66 Year
  Sex: Female
  Weight: 61.2356 kg

DRUGS (5)
  1. LEXAPRO [Suspect]
     Indication: PAIN
     Dosage: 10 MG QD PO
     Route: 048
     Dates: start: 20030712, end: 20030801
  2. INDERAL [Concomitant]
  3. PREMARIN [Concomitant]
  4. VALIUM [Concomitant]
  5. TYLENOL [Concomitant]

REACTIONS (21)
  - ABDOMINAL DISTENSION [None]
  - ABDOMINAL PAIN [None]
  - CHILLS [None]
  - CORNEAL DYSTROPHY [None]
  - CORNEAL OEDEMA [None]
  - DIARRHOEA [None]
  - DROOLING [None]
  - DYSKINESIA [None]
  - EYE DISORDER [None]
  - FLATULENCE [None]
  - GASTROOESOPHAGEAL REFLUX DISEASE [None]
  - HALLUCINATION [None]
  - HEADACHE [None]
  - HYPERHIDROSIS [None]
  - HYPOAESTHESIA ORAL [None]
  - JOINT SWELLING [None]
  - PALPITATIONS [None]
  - PRURITUS GENERALISED [None]
  - RESTLESS LEGS SYNDROME [None]
  - SKIN ULCER [None]
  - VISION BLURRED [None]
